FAERS Safety Report 5338934-6 (Version None)
Quarter: 2007Q2

REPORT INFORMATION
  Report Type: 
  Country: None (occurrence: None)
  Receive Date: 20070404
  Receipt Date: 20061115
  Transmission Date: 20071010
  Serious: Yes (Other)
  Sender: FDA-Public Use
  Company Number: HQWYE930117NOV06

PATIENT
  Age: 44 Year
  Sex: Male
  Weight: 79.45 kg

DRUGS (1)
  1. ALAVERT [Suspect]
     Indication: HYPERSENSITIVITY
     Dosage: 2 TABLETS DAILY, ORAL
     Route: 048
     Dates: start: 20061108, end: 20061108

REACTIONS (1)
  - MIGRAINE [None]
